FAERS Safety Report 8100976-5 (Version None)
Quarter: 2012Q1

REPORT INFORMATION
  Report Type: 
  Country: None (occurrence: None)
  Receive Date: 20120129
  Receipt Date: 20111122
  Transmission Date: 20120608
  Serious: No
  Sender: FDA-Public Use
  Company Number: US-ABBOTT-11P-163-0877051-00

PATIENT
  Age: 30 Year
  Sex: Female

DRUGS (3)
  1. HUMIRA [Suspect]
     Indication: CROHN'S DISEASE
     Dates: start: 20111111
  2. CELEXA [Concomitant]
     Indication: DEPRESSION
     Route: 048
  3. FLEXERIL [Concomitant]
     Indication: TENSION
     Route: 048

REACTIONS (1)
  - FATIGUE [None]
